FAERS Safety Report 12147029 (Version 1)
Quarter: 2016Q1

REPORT INFORMATION
  Report Type: Spontaneous
  Country: US (occurrence: US)
  Receive Date: 20160304
  Receipt Date: 20160304
  Transmission Date: 20160526
  Serious: No
  Sender: FDA-Public Use
  Company Number: US-INDIVIOR LIMITED-RB-081531-2015

PATIENT
  Sex: Male

DRUGS (1)
  1. SUBUTEX [Suspect]
     Active Substance: BUPRENORPHINE HYDROCHLORIDE
     Indication: PAIN MANAGEMENT
     Dosage: UNK
     Route: 065

REACTIONS (1)
  - Off label use [Unknown]
